FAERS Safety Report 26077934 (Version 1)
Quarter: 2025Q4

REPORT INFORMATION
  Report Type: Spontaneous
  Country: US (occurrence: US)
  Receive Date: 20251122
  Receipt Date: 20251122
  Transmission Date: 20260117
  Serious: Yes (Other)
  Sender: MDD OPERATIONS
  Company Number: US-MDD US Operations-MDD202510-004084

PATIENT
  Age: 55 Year
  Sex: Female

DRUGS (2)
  1. ONAPGO [Suspect]
     Active Substance: APOMORPHINE HYDROCHLORIDE
     Indication: Parkinson^s disease
     Dosage: 1.0 MG PER HOUR CONTINUOUS INFUSION
     Route: 058
     Dates: start: 20250930
  2. ONAPGO [Suspect]
     Active Substance: APOMORPHINE HYDROCHLORIDE
     Dosage: 2MG INFUSION
     Route: 058

REACTIONS (5)
  - Hallucination, visual [Recovered/Resolved]
  - Mood altered [Unknown]
  - Anxiety [Recovered/Resolved]
  - Fall [Unknown]
  - Device occlusion [Unknown]

NARRATIVE: CASE EVENT DATE: 20251001
